FAERS Safety Report 9927642 (Version 2)
Quarter: 2014Q1

REPORT INFORMATION
  Report Type: Spontaneous
  Country: US (occurrence: US)
  Receive Date: 20140227
  Receipt Date: 20140331
  Transmission Date: 20141002
  Serious: No
  Sender: FDA-Public Use
  Company Number: US-BIOGENIDEC-2014BI017552

PATIENT
  Age: 58 Year
  Sex: Female

DRUGS (2)
  1. AVONEX [Suspect]
     Indication: MULTIPLE SCLEROSIS
     Route: 030
  2. AVONEX [Suspect]
     Indication: MULTIPLE SCLEROSIS
     Route: 030
     Dates: start: 20140218

REACTIONS (14)
  - Toothache [Recovered/Resolved]
  - Sinusitis [Recovered/Resolved]
  - Lethargy [Recovered/Resolved]
  - Tremor [Recovered/Resolved]
  - Back pain [Recovered/Resolved]
  - Flatulence [Recovered/Resolved]
  - Headache [Recovered/Resolved]
  - Nausea [Recovered/Resolved]
  - Pain [Recovered/Resolved]
  - Insomnia [Recovered/Resolved]
  - Asthenia [Not Recovered/Not Resolved]
  - Chills [Recovered/Resolved]
  - Influenza like illness [Recovered/Resolved]
  - Diarrhoea [Recovered/Resolved]
